FAERS Safety Report 6866816-7 (Version None)
Quarter: 2010Q2

REPORT INFORMATION
  Report Type: 
  Country: None (occurrence: None)
  Receive Date: 20100528
  Receipt Date: 20100406
  Transmission Date: 20101027
  Serious: No
  Sender: FDA-Public Use
  Company Number: 2010045142

PATIENT
  Age: 67 Year
  Sex: Female

DRUGS (14)
  1. TOVIAZ [Suspect]
     Indication: NOCTURIA
     Dosage: 4 MG, 1X/DAY
     Dates: start: 20100405
  2. TOVIAZ [Suspect]
     Indication: POLLAKIURIA
     Dosage: 4 MG, 1X/DAY
     Dates: start: 20100405
  3. NORVASC [Concomitant]
  4. ASPIRIN [Concomitant]
  5. TRICOR [Concomitant]
  6. METHANAMINE/SODIUM BIPHOSPH/PHENYL SALIC/METHYLENE BLUE/HYOSCYAM SULF [Concomitant]
  7. ISOSORBIDE (ISOSORBIDE) [Concomitant]
  8. ALTACE [Concomitant]
  9. METOPROLOL SUCCINATE [Concomitant]
  10. PRAVASTATIN [Concomitant]
  11. MIRTAZAPINE [Concomitant]
  12. LORAZEPAM [Concomitant]
  13. NITROQUICK (GLYCERYL TRINITRATE) [Concomitant]
  14. MACROBID [Concomitant]

REACTIONS (1)
  - DYSURIA [None]
